FAERS Safety Report 24124723 (Version 2)
Quarter: 2025Q3

REPORT INFORMATION
  Report Type: Spontaneous
  Country: JP (occurrence: JP)
  Receive Date: 20240723
  Receipt Date: 20250825
  Transmission Date: 20251021
  Serious: Yes (Other)
  Sender: Haleon PLC
  Company Number: JP-HALEON-2178823

PATIENT
  Age: 7 Decade
  Sex: Male

DRUGS (8)
  1. ALLI [Suspect]
     Active Substance: ORLISTAT
     Indication: Metabolic syndrome
     Route: 048
  2. ALLI [Suspect]
     Active Substance: ORLISTAT
     Route: 048
  3. ALLI [Suspect]
     Active Substance: ORLISTAT
     Route: 048
  4. MIYA-BM [Concomitant]
     Active Substance: CLOSTRIDIUM BUTYRICUM SPORES STRAIN M-55
     Route: 048
  5. RIIDAI Combination Tablets [Concomitant]
     Route: 048
  6. LOPERAMIDE [Concomitant]
     Active Substance: LOPERAMIDE
  7. AMLODIPINE [Concomitant]
     Active Substance: AMLODIPINE BESYLATE
  8. ROSUVASTATIN [Concomitant]
     Active Substance: ROSUVASTATIN

REACTIONS (4)
  - Haemorrhage [Recovered/Resolved]
  - Back pain [Recovered/Resolved]
  - Steatorrhoea [Recovered/Resolved]
  - Ureterolithiasis [Recovered/Resolved]

NARRATIVE: CASE EVENT DATE: 20240523
